FAERS Safety Report 25304162 (Version 1)
Quarter: 2025Q2

REPORT INFORMATION
  Report Type: Report from Study
  Country: US (occurrence: US)
  Receive Date: 20250513
  Receipt Date: 20250513
  Transmission Date: 20250717
  Serious: Yes (Other)
  Sender: ACADIA PHARMACEUTICALS
  Company Number: US-ACADIA PHARMACEUTICALS INC.-ACA-2025-PIM-005548

PATIENT
  Sex: Female

DRUGS (3)
  1. NUPLAZID [Suspect]
     Active Substance: PIMAVANSERIN TARTRATE
     Indication: Parkinson^s disease psychosis
     Dosage: 34 MILLIGRAM, QD
     Route: 048
     Dates: start: 20250422
  2. GOCOVRI [Concomitant]
     Active Substance: AMANTADINE
  3. GOCOVRI [Concomitant]
     Active Substance: AMANTADINE

REACTIONS (2)
  - Hallucination, auditory [Not Recovered/Not Resolved]
  - Product distribution issue [Not Recovered/Not Resolved]
